FAERS Safety Report 17458769 (Version 3)
Quarter: 2020Q1

REPORT INFORMATION
  Report Type: Report from Study
  Country: CA (occurrence: CA)
  Receive Date: 20200225
  Receipt Date: 20200318
  Transmission Date: 20200409
  Serious: Yes (Hospitalization)
  Sender: FDA-Public Use
  Company Number: CA-JNJFOC-20200222671

PATIENT
  Age: 56 Year
  Sex: Male

DRUGS (1)
  1. STELARA [Suspect]
     Active Substance: USTEKINUMAB
     Indication: CROHN^S DISEASE
     Route: 058

REACTIONS (4)
  - Hernia [Unknown]
  - Off label use [Unknown]
  - Product use issue [Unknown]
  - Incision site abscess [Recovered/Resolved]

NARRATIVE: CASE EVENT DATE: 20200126
